FAERS Safety Report 5128135-9 (Version None)
Quarter: 2006Q4

REPORT INFORMATION
  Report Type: 
  Country: None (occurrence: None)
  Receive Date: 20061011
  Receipt Date: 20060920
  Transmission Date: 20070319
  Serious: Yes (Hospitalization)
  Sender: FDA-Public Use
  Company Number: 230662

PATIENT
  Age: 74 Year
  Sex: Male

DRUGS (14)
  1. AVASTIN [Suspect]
     Indication: COLON CANCER
     Dosage: 550 MG, Q3W, INTRAVENOUS
     Route: 042
     Dates: start: 20060123
  2. CAPECITABINE(CAPECITABINE) [Suspect]
     Indication: COLORECTAL CANCER
     Dosage: 1800 MG, BID, ORAL
     Route: 048
     Dates: start: 20060123
  3. OXALIPLATIN [Suspect]
     Indication: COLON CANCER
     Dosage: 250 MG, Q3W, INTRAVENOUS
     Route: 042
     Dates: start: 20060123
  4. ERBITUX [Suspect]
     Indication: COLON CANCER
     Dosage: 400 MG/M2, INTRAVENOUS; 476 MG, 1/WEEK
     Route: 042
     Dates: start: 20060123
  5. ONDANSETRON [Concomitant]
  6. DEXAMETHASONE TAB [Concomitant]
  7. METOCLOPRAMIDE [Concomitant]
  8. LOPERAMIDE [Concomitant]
  9. KALIUMCHLORID (POTASSIUM CHLORIDE) [Concomitant]
  10. OMEPRAZOLE [Concomitant]
  11. MOVICOLON (ELECTROLYTES NOS, POLYTHYLENE GLYCOL) [Concomitant]
  12. ALCOHOL (ALCOHOL) [Concomitant]
  13. ERYTHROMYCIN [Concomitant]
  14. VASCACE (CILAZAPRIL) [Concomitant]

REACTIONS (4)
  - ANOREXIA [None]
  - CACHEXIA [None]
  - ORAL INTAKE REDUCED [None]
  - VOMITING [None]
